FAERS Safety Report 14253342 (Version 4)
Quarter: 2018Q2

REPORT INFORMATION
  Report Type: Spontaneous
  Country: JP (occurrence: JP)
  Receive Date: 20171205
  Receipt Date: 20180507
  Transmission Date: 20180711
  Serious: Yes (Hospitalization, Disabling)
  Sender: FDA-Public Use
  Company Number: JP-ELI_LILLY_AND_COMPANY-JP201711012932

PATIENT
  Age: 84 Year
  Sex: Male
  Weight: 42 kg

DRUGS (4)
  1. ERBITUX [Suspect]
     Active Substance: CETUXIMAB
     Dosage: 360 MG, UNKNOWN
     Route: 041
     Dates: start: 20170407
  2. 5-FU                               /00098801/ [Concomitant]
     Active Substance: FLUOROURACIL
     Indication: LARYNGEAL CANCER
     Dosage: 1000 MG, MONTHLY (1/M)
     Route: 041
     Dates: start: 20170327, end: 20171020
  3. ERBITUX [Suspect]
     Active Substance: CETUXIMAB
     Indication: LARYNGEAL CANCER
     Dosage: 570 MG, UNKNOWN
     Route: 041
     Dates: start: 20170327, end: 20170327
  4. CARBOPLATIN. [Concomitant]
     Active Substance: CARBOPLATIN
     Indication: LARYNGEAL CANCER
     Dosage: 200 MG, MONTHLY (1/M)
     Route: 041
     Dates: start: 20170327, end: 20171017

REACTIONS (7)
  - Pneumonitis [Recovered/Resolved]
  - Asthenia [Unknown]
  - Altered state of consciousness [Not Recovered/Not Resolved]
  - Hypocalcaemia [Recovered/Resolved]
  - Decreased appetite [Unknown]
  - Hypoglycaemic encephalopathy [Not Recovered/Not Resolved]
  - Circulatory collapse [Unknown]

NARRATIVE: CASE EVENT DATE: 20171120
